FAERS Safety Report 8509950-8 (Version None)
Quarter: 2012Q3

REPORT INFORMATION
  Report Type: 
  Country: None (occurrence: None)
  Receive Date: 20120713
  Receipt Date: 20120704
  Transmission Date: 20120928
  Serious: Yes (Hospitalization)
  Sender: FDA-Public Use
  Company Number: DE-ELI_LILLY_AND_COMPANY-DE201207001164

PATIENT
  Sex: Female

DRUGS (5)
  1. CALCIUM [Concomitant]
  2. VITAMIN D [Concomitant]
  3. OXYCODONE HYDROCHLORIDE [Concomitant]
  4. OXYGESIC AKUT [Concomitant]
  5. FORTEO [Suspect]
     Indication: OSTEOPOROSIS
     Dosage: UNK, QD
     Route: 058
     Dates: start: 20101011

REACTIONS (1)
  - GENERAL PHYSICAL HEALTH DETERIORATION [None]
